FAERS Safety Report 19946354 (Version 1)
Quarter: 2021Q4

REPORT INFORMATION
  Report Type: Spontaneous
  Country: US (occurrence: US)
  Receive Date: 20211013
  Receipt Date: 20211013
  Transmission Date: 20220304
  Serious: Yes (Death, Hospitalization, Other)
  Sender: FDA-Public Use
  Company Number: US-AMGEN-USASP2021154650

PATIENT
  Age: 71 Year
  Sex: Male

DRUGS (5)
  1. RITUXIMAB [Suspect]
     Active Substance: RITUXIMAB
     Indication: Mantle cell lymphoma
     Dosage: 375 MILLIGRAM/SQ. METER ON DAY 1
     Route: 065
  2. BENDAMUSTINE [Suspect]
     Active Substance: BENDAMUSTINE
     Indication: Mantle cell lymphoma
     Dosage: 90 MILLIGRAM/SQ. METER, QD
     Route: 065
  3. DEXAMETHASONE [Concomitant]
     Active Substance: DEXAMETHASONE
     Dosage: 12 MILLIGRAM, QD (DAYS 2 AND 3)
     Route: 048
  4. DEXAMETHASONE [Concomitant]
     Active Substance: DEXAMETHASONE
     Dosage: 10 MILLIGRAM/SQ. METER, QD
     Route: 042
  5. CYTARABINE [Concomitant]
     Active Substance: CYTARABINE
     Dosage: UNK

REACTIONS (12)
  - Death [Fatal]
  - Cytomegalovirus enteritis [Unknown]
  - Ascites [Unknown]
  - Haemophagocytic lymphohistiocytosis [Unknown]
  - Enterococcal infection [Unknown]
  - SARS-CoV-2 test positive [Unknown]
  - Oral candidiasis [Unknown]
  - Beta globulin increased [Unknown]
  - Neutropenia [Unknown]
  - Lung infiltration [Unknown]
  - Hypoxia [Unknown]
  - Respiratory distress [Unknown]
